FAERS Safety Report 12720940 (Version 1)
Quarter: 2016Q3

REPORT INFORMATION
  Report Type: Spontaneous
  Country: US (occurrence: US)
  Receive Date: 20160907
  Receipt Date: 20160907
  Transmission Date: 20161109
  Serious: No
  Sender: FDA-Public Use
  Company Number: US-WATSON-2015-25210

PATIENT
  Sex: Female

DRUGS (6)
  1. TAGAMET [Concomitant]
     Active Substance: CIMETIDINE
     Indication: GASTROOESOPHAGEAL REFLUX DISEASE
     Dosage: 1 DF, DAILY
     Route: 065
  2. PREVACID [Concomitant]
     Active Substance: LANSOPRAZOLE
     Indication: GASTROOESOPHAGEAL REFLUX DISEASE
     Dosage: 1 DF, DAILY
     Route: 065
  3. PREVACID [Concomitant]
     Active Substance: LANSOPRAZOLE
     Dosage: 2 DF, DAILY PRN WHEN HAVING ACID REFLUX ATTACK
     Route: 065
  4. TRAUMEEL                           /06048201/ [Concomitant]
     Indication: ARTHRITIS
     Dosage: UNK, 2-3 TIMES PER DAY
     Route: 061
  5. ALENDRONATE SODIUM (WATSON LABORATORIES) [Suspect]
     Active Substance: ALENDRONATE SODIUM
     Indication: ARTHRITIS
     Dosage: 70 MG, 1/WEEK
     Route: 048
     Dates: start: 20150827
  6. TAGAMET [Concomitant]
     Active Substance: CIMETIDINE
     Dosage: 2 DF, DAILY PRN WHEN HAVING AN ACID ATTACK
     Route: 065

REACTIONS (4)
  - Nausea [Not Recovered/Not Resolved]
  - Oral pain [Not Recovered/Not Resolved]
  - Product use issue [Not Recovered/Not Resolved]
  - Dry mouth [Not Recovered/Not Resolved]

NARRATIVE: CASE EVENT DATE: 201508
